FAERS Safety Report 11399958 (Version 1)
Quarter: 2015Q3

REPORT INFORMATION
  Report Type: Spontaneous
  Country: US (occurrence: None)
  Receive Date: 20150805
  Receipt Date: 20150805
  Transmission Date: 20151125
  Serious: Yes (Hospitalization)
  Sender: FDA-Public Use
  Company Number: GTI002571

PATIENT
  Age: 46 Year
  Sex: Male
  Weight: 140 kg

DRUGS (21)
  1. CARVEDILOL. [Concomitant]
     Active Substance: CARVEDILOL
  2. FUROSEMIDE. [Concomitant]
     Active Substance: FUROSEMIDE
  3. MAGNESIUM OXIDE. [Concomitant]
     Active Substance: MAGNESIUM OXIDE
  4. ANTITHYMOCYTE IMMUNOGLOBULIN [Concomitant]
     Active Substance: THYMOCYTE IMMUNE GLOBULIN NOS
  5. ASPIRIN. [Concomitant]
     Active Substance: ASPIRIN
  6. PRENATAL WITH FOLIC ACID/02279001/ [Concomitant]
  7. MYCOPHENOLIC ACID. [Concomitant]
     Active Substance: MYCOPHENOLIC ACID
  8. SEVELAMER HYDROCHLORIDE [Concomitant]
     Active Substance: SEVELAMER HYDROCHLORIDE
  9. ATG/00575401/ [Concomitant]
  10. TACROLIMUS. [Concomitant]
     Active Substance: TACROLIMUS
  11. VELCADE [Concomitant]
     Active Substance: BORTEZOMIB
  12. ALLOPURINOL. [Concomitant]
     Active Substance: ALLOPURINOL
  13. INSULIN LISPRO [Concomitant]
     Active Substance: INSULIN LISPRO
  14. LOVASTATIN. [Concomitant]
     Active Substance: LOVASTATIN
  15. AMLODIPINE [Concomitant]
     Active Substance: AMLODIPINE BESYLATE
  16. INSULIN GLARGINE [Concomitant]
     Active Substance: INSULIN GLARGINE
  17. IGIV [Concomitant]
     Active Substance: HUMAN IMMUNOGLOBULIN G
  18. GAMUNEX-C [Suspect]
     Active Substance: HUMAN IMMUNOGLOBULIN G
     Indication: KIDNEY TRANSPLANT REJECTION
     Route: 042
     Dates: start: 20140826, end: 20140909
  19. CALCIUM CARBONATE. [Concomitant]
     Active Substance: CALCIUM CARBONATE
  20. PREDNISONE. [Concomitant]
     Active Substance: PREDNISONE
  21. METHYLPREDNISOLONE. [Concomitant]
     Active Substance: METHYLPREDNISOLONE

REACTIONS (1)
  - Haemolytic anaemia [None]

NARRATIVE: CASE EVENT DATE: 20140909
